FAERS Safety Report 14890215 (Version 1)
Quarter: 2018Q2

REPORT INFORMATION
  Report Type: Spontaneous
  Country: US (occurrence: US)
  Receive Date: 20180426
  Receipt Date: 20180426
  Transmission Date: 20180711
  Serious: Yes (Hospitalization)
  Sender: FDA-Public Use
  Company Number: None

PATIENT
  Sex: Female

DRUGS (12)
  1. AMLODIPINE [Concomitant]
     Active Substance: AMLODIPINE BESYLATE
  2. LEVOTHYROXIN [Concomitant]
     Active Substance: LEVOTHYROXINE
  3. LAMICTAL [Concomitant]
     Active Substance: LAMOTRIGINE
  4. PROCRIT [Concomitant]
     Active Substance: ERYTHROPOIETIN
  5. PREDNISONE. [Concomitant]
     Active Substance: PREDNISONE
  6. LABETALOL [Concomitant]
     Active Substance: LABETALOL\LABETALOL HYDROCHLORIDE
  7. CALCITRIOL. [Concomitant]
     Active Substance: CALCITRIOL
  8. PRAVASTATIN. [Concomitant]
     Active Substance: PRAVASTATIN
  9. TACROLIMUS. [Suspect]
     Active Substance: TACROLIMUS
     Indication: RENAL TRANSPLANT
     Route: 048
     Dates: start: 20160331
  10. TACROLIMUS. [Suspect]
     Active Substance: TACROLIMUS
     Indication: RENAL TRANSPLANT
     Route: 048
     Dates: start: 20170811
  11. ASPIRIN. [Concomitant]
     Active Substance: ASPIRIN
  12. LOSARTAN POT [Concomitant]
     Active Substance: LOSARTAN POTASSIUM

REACTIONS (1)
  - Dehydration [None]
